FAERS Safety Report 14161959 (Version 2)
Quarter: 2017Q4

REPORT INFORMATION
  Report Type: Spontaneous
  Country: CA (occurrence: CA)
  Receive Date: 20171106
  Receipt Date: 20171120
  Transmission Date: 20180321
  Serious: Yes (Other)
  Sender: FDA-Public Use
  Company Number: CA-HIKMA PHARMACEUTICALS CO. LTD-2017CA009281

PATIENT

DRUGS (10)
  1. INFLECTRA [Suspect]
     Active Substance: INFLIXIMAB-DYYB
     Dosage: 400 MG, CYCLIC (EVERY 4 WEEKS)
     Route: 042
  2. CORTIFOAM [Concomitant]
     Active Substance: HYDROCORTISONE ACETATE
     Dosage: UNK
  3. CALCIUM [Concomitant]
     Active Substance: CALCIUM
     Dosage: UNK
  4. MEZAVANT [Concomitant]
     Active Substance: MESALAMINE
     Dosage: 4 TABLETS OF 1.4 MG DAILY
     Dates: start: 201408
  5. INFLECTRA [Suspect]
     Active Substance: INFLIXIMAB-DYYB
     Dosage: 10 MG/KG,CYCLIC (IN 2 WEEKS AND 6 WEEKS, THEN EVERY 4 WEEKS)
     Route: 042
     Dates: start: 20171110
  6. INFLECTRA [Suspect]
     Active Substance: INFLIXIMAB-DYYB
     Dosage: 5 MG/KG,  360 MG (RESCUE DOSE)
     Route: 042
     Dates: start: 20171027, end: 20171027
  7. VITAMIN D                          /00107901/ [Concomitant]
     Active Substance: ERGOCALCIFEROL
     Dosage: UNK
  8. SALOFALK ODD [Concomitant]
     Dosage: UNK
  9. INFLECTRA [Suspect]
     Active Substance: INFLIXIMAB-DYYB
     Indication: COLITIS ULCERATIVE
     Dosage: 400 MG, CYCLIC (EACH 0, 2,6 WEEKS, THEN EVERY 8WEEKS)
     Route: 042
     Dates: start: 20170619
  10. PREDNISONE. [Concomitant]
     Active Substance: PREDNISONE
     Dosage: 22.5 MG ONCE DAILY
     Dates: start: 20170501

REACTIONS (8)
  - Drug ineffective [Not Recovered/Not Resolved]
  - Diarrhoea [Not Recovered/Not Resolved]
  - Frequent bowel movements [Unknown]
  - Abdominal pain [Unknown]
  - Product use issue [Unknown]
  - Haematochezia [Not Recovered/Not Resolved]
  - Hypertension [Unknown]
  - Heart rate abnormal [Unknown]

NARRATIVE: CASE EVENT DATE: 20170912
